FAERS Safety Report 16885541 (Version 2)
Quarter: 2020Q1

REPORT INFORMATION
  Report Type: Spontaneous
  Country: US (occurrence: US)
  Receive Date: 20191004
  Receipt Date: 20200113
  Transmission Date: 20200409
  Serious: Yes (Disabling, Other)
  Sender: FDA-Public Use
  Company Number: US-SA-2019SA272073

PATIENT
  Age: 58 Year
  Sex: Female

DRUGS (1)
  1. TOUJEO [Suspect]
     Active Substance: INSULIN GLARGINE
     Indication: TYPE 2 DIABETES MELLITUS
     Dosage: 60 IU, BID
     Route: 065

REACTIONS (5)
  - Inappropriate schedule of product administration [Unknown]
  - Device operational issue [Unknown]
  - Disability [Unknown]
  - Product dose omission [Unknown]
  - Blood glucose increased [Unknown]
